FAERS Safety Report 14382411 (Version 2)
Quarter: 2018Q1

REPORT INFORMATION
  Report Type: Spontaneous
  Country: US (occurrence: US)
  Receive Date: 20180112
  Receipt Date: 20180130
  Transmission Date: 20180509
  Serious: Yes (Hospitalization, Other)
  Sender: FDA-Public Use
  Company Number: US-BAUSCH-BL-2018-000183

PATIENT
  Age: 53 Year
  Sex: Female
  Weight: 48.12 kg

DRUGS (4)
  1. MYSOLINE [Suspect]
     Active Substance: PRIMIDONE
     Indication: PETIT MAL EPILEPSY
     Dosage: FOR ABOUT 40 YEARS
     Route: 065
  2. MYSOLINE [Suspect]
     Active Substance: PRIMIDONE
     Route: 048
  3. MYSOLINE [Suspect]
     Active Substance: PRIMIDONE
     Indication: POSTOPERATIVE CARE
     Dosage: 5 CAPSULES OF 50 MG
     Route: 065
  4. DILANTIN [Concomitant]
     Active Substance: PHENYTOIN
     Indication: PRODUCT USED FOR UNKNOWN INDICATION
     Route: 048

REACTIONS (3)
  - Thrombosis [Recovered/Resolved]
  - Dizziness [Recovered/Resolved]
  - Fall [Recovered/Resolved]

NARRATIVE: CASE EVENT DATE: 200911
